FAERS Safety Report 22374635 (Version 1)
Quarter: 2023Q2

REPORT INFORMATION
  Report Type: Spontaneous
  Country: BG (occurrence: BG)
  Receive Date: 20230526
  Receipt Date: 20230526
  Transmission Date: 20230722
  Serious: Yes (Other)
  Sender: FDA-Public Use
  Company Number: BG-TEVA-2023-BG-2890812

PATIENT
  Age: 27 Year
  Sex: Female

DRUGS (1)
  1. DIAZEPAM [Suspect]
     Active Substance: DIAZEPAM
     Indication: Seizure
     Route: 065

REACTIONS (2)
  - Abortion missed [Unknown]
  - Maternal exposure during pregnancy [Unknown]
